FAERS Safety Report 6274225-7 (Version None)
Quarter: 2009Q3

REPORT INFORMATION
  Report Type: 
  Country: None (occurrence: None)
  Receive Date: 20090720
  Receipt Date: 20090716
  Transmission Date: 20100115
  Serious: Yes (Hospitalization)
  Sender: FDA-Public Use
  Company Number: FR-BRISTOL-MYERS SQUIBB COMPANY-14705487

PATIENT
  Age: 64 Year
  Sex: Male

DRUGS (6)
  1. IRBESARTAN [Suspect]
     Indication: HYPERTENSION
     Route: 048
     Dates: end: 20090401
  2. KREDEX [Suspect]
     Indication: CARDIAC FAILURE
     Route: 048
     Dates: end: 20090401
  3. VITAMIN B1 TAB [Concomitant]
  4. DOLIPRANE [Concomitant]
  5. ZOLPIDEM [Concomitant]
  6. CACIT [Concomitant]

REACTIONS (3)
  - FALL [None]
  - MALAISE [None]
  - ORTHOSTATIC HYPOTENSION [None]
